FAERS Safety Report 15550052 (Version 2)
Quarter: 2019Q1

REPORT INFORMATION
  Report Type: Spontaneous
  Country: US (occurrence: US)
  Receive Date: 20181025
  Receipt Date: 20190107
  Transmission Date: 20190417
  Serious: Yes (Other)
  Sender: FDA-Public Use
  Company Number: US-BAYER-2018-197084

PATIENT
  Age: 41 Year
  Sex: Female
  Weight: 67.7 kg

DRUGS (3)
  1. MIRENA [Suspect]
     Active Substance: LEVONORGESTREL
     Indication: CONTRACEPTION
     Dosage: UNK
  2. SILVER NITRATE. [Concomitant]
     Active Substance: SILVER NITRATE
  3. MIRENA [Suspect]
     Active Substance: LEVONORGESTREL
     Indication: CONTRACEPTION
     Dosage: 20 MCG/24HR, CONT
     Route: 015
     Dates: start: 20180910, end: 20181102

REACTIONS (6)
  - Procedural pain [None]
  - Device difficult to use [None]
  - Abdominal pain lower [None]
  - Device use issue [None]
  - Post procedural haemorrhage [Recovering/Resolving]
  - Device dislocation [None]

NARRATIVE: CASE EVENT DATE: 2018
